FAERS Safety Report 8083898-8 (Version None)
Quarter: 2012Q1

REPORT INFORMATION
  Report Type: 
  Country: None (occurrence: None)
  Receive Date: 20120128
  Receipt Date: 20110111
  Transmission Date: 20120608
  Serious: No
  Sender: FDA-Public Use
  Company Number: US-ABBOTT-11P-163-0697147-00

PATIENT
  Sex: Female
  Weight: 61.29 kg

DRUGS (11)
  1. IRON [Concomitant]
     Indication: MINERAL SUPPLEMENTATION
  2. TRICOR [Concomitant]
     Indication: BLOOD CHOLESTEROL INCREASED
  3. BUSPAR [Concomitant]
     Indication: DEPRESSION
  4. LEVOTHYROXINE SODIUM [Concomitant]
     Indication: HYPOTHYROIDISM
  5. ONDANSETRON HCL [Concomitant]
     Indication: NAUSEA
  6. ZOLOFT [Concomitant]
     Indication: DEPRESSION
  7. SINGULAIR [Concomitant]
     Indication: HYPERSENSITIVITY
  8. CYMBALTA [Concomitant]
     Indication: DEPRESSION
  9. HUMIRA [Suspect]
     Indication: CROHN'S DISEASE
     Dates: start: 20101217
  10. SYMBICORT [Concomitant]
     Indication: ASTHMA
  11. SPIRIVA [Concomitant]
     Indication: ASTHMA

REACTIONS (2)
  - BLISTER [None]
  - RASH [None]
